FAERS Safety Report 23769669 (Version 10)
Quarter: 2024Q3

REPORT INFORMATION
  Report Type: Report from Study
  Country: CL (occurrence: CL)
  Receive Date: 20240422
  Receipt Date: 20240910
  Transmission Date: 20241016
  Serious: Yes (Life-Threatening, Hospitalization, Other)
  Sender: NOVARTIS
  Company Number: CL-002147023-NVSC2024CL084022

PATIENT
  Age: 43 Year
  Sex: Female

DRUGS (19)
  1. KESIMPTA [Suspect]
     Active Substance: OFATUMUMAB
     Indication: Relapsing-remitting multiple sclerosis
     Dosage: 20 MG, QMO (WEEK 0)
     Route: 058
     Dates: start: 20240223
  2. KESIMPTA [Suspect]
     Active Substance: OFATUMUMAB
     Dosage: UNK, 2ND DOSE (WEEK 1)
     Route: 065
     Dates: start: 20240301
  3. KESIMPTA [Suspect]
     Active Substance: OFATUMUMAB
     Dosage: UNK, 3RD DOSE (WEEK 2)
     Route: 065
     Dates: start: 20240308
  4. KESIMPTA [Suspect]
     Active Substance: OFATUMUMAB
     Dosage: UNK 4TH DOSE (WEEK 4)
     Route: 065
     Dates: start: 20240322
  5. KESIMPTA [Suspect]
     Active Substance: OFATUMUMAB
     Dosage: 20 MG, QMO (6TH DOSE)
     Route: 058
     Dates: start: 20240524, end: 20240621
  6. KESIMPTA [Suspect]
     Active Substance: OFATUMUMAB
     Dosage: UNK
     Route: 065
     Dates: end: 20240524
  7. KESIMPTA [Suspect]
     Active Substance: OFATUMUMAB
     Dosage: UNK LAST DOSE 7TH DOSE
     Route: 065
     Dates: start: 20240621
  8. KESIMPTA [Suspect]
     Active Substance: OFATUMUMAB
     Dosage: 20 MG, QMO
     Route: 058
  9. RITUXIMAB [Concomitant]
     Active Substance: RITUXIMAB
     Indication: Product used for unknown indication
     Dosage: UNK
     Route: 065
  10. CYCLOSPORINE [Concomitant]
     Active Substance: CYCLOSPORINE
     Indication: Product used for unknown indication
     Dosage: UNK
     Route: 065
  11. CELECOXIB [Concomitant]
     Active Substance: CELECOXIB
     Indication: Product used for unknown indication
     Dosage: 200 MG, QD
     Route: 048
  12. LEVOTHYROXINE [Concomitant]
     Active Substance: LEVOTHYROXINE\LEVOTHYROXINE SODIUM
     Indication: Product used for unknown indication
     Dosage: 125 MG, Q8H
     Route: 048
  13. LEVOTHYROXINE [Concomitant]
     Active Substance: LEVOTHYROXINE\LEVOTHYROXINE SODIUM
     Dosage: 125 UG, QD
     Route: 065
  14. METFORMIN [Concomitant]
     Active Substance: METFORMIN HYDROCHLORIDE
     Indication: Product used for unknown indication
     Dosage: 500 MG, QD
     Route: 048
  15. CEFEPIME [Concomitant]
     Active Substance: CEFEPIME HYDROCHLORIDE
     Indication: Product used for unknown indication
     Dosage: UNK
     Route: 065
  16. TAZOBACTAM [Concomitant]
     Active Substance: TAZOBACTAM
     Indication: Product used for unknown indication
     Dosage: UNK
     Route: 065
  17. CEFADROXIL [Concomitant]
     Active Substance: CEFADROXIL
     Indication: Product used for unknown indication
     Dosage: 500 MG, Q8H (10 DAYS)
     Route: 048
  18. ACETAMINOPHEN [Concomitant]
     Active Substance: ACETAMINOPHEN
     Indication: Product used for unknown indication
     Dosage: 1 GRAM, Q8H
     Route: 048
  19. VENLAFAXINE [Concomitant]
     Active Substance: VENLAFAXINE HYDROCHLORIDE
     Indication: Product used for unknown indication
     Dosage: 75 MG, QD
     Route: 048

REACTIONS (37)
  - Lymphocyte count decreased [Unknown]
  - Cellulitis [Recovered/Resolved]
  - Oedema [Unknown]
  - Erythema [Unknown]
  - Sepsis [Recovered/Resolved]
  - Abdominal pain [Recovered/Resolved]
  - Tenosynovitis [Unknown]
  - Chills [Recovered/Resolved]
  - Cyst [Unknown]
  - Headache [Recovered/Resolved]
  - Cholangitis [Unknown]
  - Cough [Recovered/Resolved]
  - Pyrexia [Recovered/Resolved]
  - Aeromonas infection [Unknown]
  - Febrile neutropenia [Recovered/Resolved]
  - Monocytosis [Unknown]
  - Hypokalaemia [Unknown]
  - Oral herpes [Unknown]
  - Pyelonephritis acute [Recovered/Resolved]
  - Infection [Recovered/Resolved]
  - Asplenia [Unknown]
  - Cholelithiasis [Unknown]
  - Renal cyst [Unknown]
  - Neutrophil count increased [Unknown]
  - Platelet count increased [Unknown]
  - Red blood cell sedimentation rate increased [Unknown]
  - Blood lactate dehydrogenase increased [Unknown]
  - Nodule [Unknown]
  - Escherichia infection [Unknown]
  - Pain [Recovered/Resolved]
  - Urinary tract infection [Recovered/Resolved]
  - Aspartate aminotransferase increased [Unknown]
  - Alanine aminotransferase increased [Unknown]
  - Blood immunoglobulin M decreased [Unknown]
  - International normalised ratio increased [Unknown]
  - Uterine leiomyoma [Unknown]
  - Urine analysis abnormal [Unknown]

NARRATIVE: CASE EVENT DATE: 20240401
